FAERS Safety Report 7239234-X (Version None)
Quarter: 2011Q1

REPORT INFORMATION
  Report Type: 
  Country: None (occurrence: None)
  Receive Date: 20110121
  Receipt Date: 20110121
  Transmission Date: 20110831
  Serious: Yes (Other)
  Sender: FDA-Public Use
  Company Number: US-ELI_LILLY_AND_COMPANY-US201008006770

PATIENT
  Sex: Female

DRUGS (6)
  1. LOMOTIL [Concomitant]
     Dosage: UNK, AS NEEDED
  2. TRIAMTERENE [Concomitant]
  3. ALPRAZOLAM [Concomitant]
     Dosage: UNK, AS NEEDED
  4. EVISTA [Suspect]
     Indication: OSTEOPOROSIS
     Dosage: 60 MG, DAILY (1/D)
  5. FORTEO [Suspect]
     Indication: OSTEOPOROSIS
     Dosage: 20 UG, DAILY (1/D)
  6. SYNTHROID [Concomitant]

REACTIONS (6)
  - GALLBLADDER OPERATION [None]
  - UTERINE PROLAPSE [None]
  - BLADDER PROLAPSE [None]
  - HIATUS HERNIA [None]
  - DYSPEPSIA [None]
  - IRRITABLE BOWEL SYNDROME [None]
